FAERS Safety Report 9769852 (Version 1)
Quarter: 2013Q4

REPORT INFORMATION
  Report Type: Spontaneous
  Country: US (occurrence: US)
  Receive Date: 20131218
  Receipt Date: 20131218
  Transmission Date: 20140711
  Serious: No
  Sender: FDA-Public Use
  Company Number: US-BAYER-2013-154566

PATIENT
  Age: 65 Year
  Sex: Female
  Weight: 68 kg

DRUGS (2)
  1. ALEVE CAPLET [Suspect]
     Indication: ARTHRITIS
     Dosage: 1 DF, PRN
     Route: 048
     Dates: start: 201310, end: 201311
  2. ALEVE LIQUID GELS [Suspect]
     Indication: ARTHRITIS
     Dosage: 1 DF, BID
     Route: 048
     Dates: start: 201311

REACTIONS (2)
  - Abdominal discomfort [Recovered/Resolved]
  - Incorrect drug administration duration [None]
